FAERS Safety Report 6406196-4 (Version None)
Quarter: 2009Q4

REPORT INFORMATION
  Report Type: 
  Country: None (occurrence: None)
  Receive Date: 20091014
  Receipt Date: 20090924
  Transmission Date: 20100525
  Serious: Yes (Other)
  Sender: FDA-Public Use
  Company Number: 2009SP029834

PATIENT
  Age: 77 Year
  Sex: Male

DRUGS (2)
  1. TICE BCG [Suspect]
     Indication: BLADDER NEOPLASM
     Dosage: 1 DF;QW
     Dates: start: 20060101
  2. TICE BCG [Suspect]
     Indication: NEOPLASM PROSTATE
     Dosage: 1 DF;QW
     Dates: start: 20060101

REACTIONS (3)
  - BLADDER NEOPLASM [None]
  - NEOPLASM PROSTATE [None]
  - NEOPLASM RECURRENCE [None]
